FAERS Safety Report 8519313 (Version 7)
Quarter: 2012Q4

REPORT INFORMATION
  Report Type: 
  Country: BE (occurrence: NL)
  Receive Date: 20120418
  Receipt Date: 20121030
  Transmission Date: 20130627
  Serious: Yes (Death, Life-Threatening, Hospitalization, Other)
  Sender: FDA-Public Use
  Company Number: NL-GENZYME-CLOF-1002119

PATIENT
  Age: 38 Year
  Sex: Male
  Weight: 80 kg

DRUGS (9)
  1. EVOLTRA [Suspect]
     Indication: ACUTE MYELOID LEUKAEMIA
     Dosage: 10 mg/m2, qod, on days 2, 4, 6, 8, 10
     Route: 042
     Dates: start: 20120105, end: 20120113
  2. CYTARABINE [Suspect]
     Indication: ACUTE MYELOID LEUKAEMIA
     Dosage: 200 mg, qd
     Route: 042
     Dates: start: 20120104, end: 20120113
  3. ZAVEDOS [Suspect]
     Indication: ACUTE MYELOID LEUKAEMIA
     Dosage: 10 mg/m2, qod, on days 1, 3, 5
     Route: 042
     Dates: start: 20120104, end: 20120108
  4. VFEND [Concomitant]
     Indication: PROPHYLAXIS
     Dosage: 200 mg, bid
     Route: 042
     Dates: start: 20120105, end: 20120125
  5. ZELITREX [Concomitant]
     Indication: PROPHYLAXIS
     Dosage: 500 mg, bid
     Route: 048
     Dates: start: 20120104, end: 20120116
  6. FORTUM [Concomitant]
     Indication: PYREXIA
     Dosage: 1000 mg, qid
     Route: 042
     Dates: start: 20120105, end: 20120109
  7. CEFUROXIM [Concomitant]
     Indication: PYREXIA
     Dosage: 750 mg, tid
     Route: 042
     Dates: start: 20120110, end: 20120116
  8. COLISTIN [Concomitant]
     Indication: PROPHYLAXIS
     Dosage: 100 mg, qid
     Route: 048
     Dates: start: 20120103, end: 20120117
  9. ALLOPURINOL [Concomitant]
     Indication: PROPHYLAXIS
     Dosage: 300 mg, qd
     Route: 048
     Dates: start: 20111231, end: 20120109

REACTIONS (5)
  - Neutropenic colitis [Fatal]
  - Ileus [Fatal]
  - Pleural effusion [Unknown]
  - Sepsis [Fatal]
  - Acute respiratory distress syndrome [Fatal]
